FAERS Safety Report 17909005 (Version 3)
Quarter: 2020Q3

REPORT INFORMATION
  Report Type: Report from Study
  Country: CA (occurrence: CA)
  Receive Date: 20200617
  Receipt Date: 20200708
  Transmission Date: 20201103
  Serious: Yes (Other)
  Sender: FDA-Public Use
  Company Number: CA-BRISTOL-MYERS SQUIBB COMPANY-BMS-2020-028153

PATIENT
  Age: 74 Year
  Sex: Female

DRUGS (5)
  1. MTX [METHOTREXATE] [Concomitant]
     Active Substance: METHOTREXATE SODIUM
     Indication: PRODUCT USED FOR UNKNOWN INDICATION
     Route: 065
  2. ABATACEPT [Suspect]
     Active Substance: ABATACEPT
     Indication: RHEUMATOID ARTHRITIS
     Dosage: 500 MILLIGRAM, QMO
     Route: 042
     Dates: start: 20200318, end: 20200610
  3. PLAQUENIL [Concomitant]
     Active Substance: HYDROXYCHLOROQUINE SULFATE
     Indication: PRODUCT USED FOR UNKNOWN INDICATION
     Route: 065
  4. CALCIUM + VIT D [Concomitant]
     Active Substance: CALCIUM\VITAMIN D
     Indication: PRODUCT USED FOR UNKNOWN INDICATION
     Route: 065
  5. FOLIC ACID. [Concomitant]
     Active Substance: FOLIC ACID
     Indication: PRODUCT USED FOR UNKNOWN INDICATION
     Route: 065

REACTIONS (8)
  - Cataract [Unknown]
  - Psoriasis [Unknown]
  - Arthritis [Unknown]
  - Pain in extremity [Unknown]
  - Drug ineffective [Unknown]
  - Rheumatoid arthritis [Unknown]
  - Arthralgia [Unknown]
  - Off label use [Unknown]

NARRATIVE: CASE EVENT DATE: 202005
